FAERS Safety Report 22294173 (Version 1)
Quarter: 2023Q2

REPORT INFORMATION
  Report Type: Spontaneous
  Country: CN (occurrence: CN)
  Receive Date: 20230508
  Receipt Date: 20230508
  Transmission Date: 20230721
  Serious: Yes (Other)
  Sender: FDA-Public Use
  Company Number: None

PATIENT
  Age: 52 Year
  Sex: Female
  Weight: 60 kg

DRUGS (1)
  1. MANNITOL [Suspect]
     Active Substance: MANNITOL
     Indication: Poor peripheral circulation
     Dosage: 250 ML, ONCE DAILY, DOSAGE FORM: INJECTION, ADMINISTRATED AT A SLOW DRIP RATE
     Route: 041
     Dates: start: 20230420, end: 20230420

REACTIONS (6)
  - Drug hypersensitivity [Recovered/Resolved]
  - Anaphylactic shock [Recovering/Resolving]
  - Coma [Recovering/Resolving]
  - Peripheral coldness [Recovering/Resolving]
  - Cyanosis [Recovering/Resolving]
  - Dyspnoea [Recovering/Resolving]

NARRATIVE: CASE EVENT DATE: 20230420
